FAERS Safety Report 9097041 (Version 1)
Quarter: 2013Q1

REPORT INFORMATION
  Report Type: Spontaneous
  Country: CN (occurrence: None)
  Receive Date: 20130123
  Receipt Date: 20130123
  Transmission Date: 20140127
  Serious: Yes (Hospitalization)
  Sender: FDA-Public Use
  Company Number: PD 173

PATIENT
  Age: 2 Year
  Sex: Female

DRUGS (2)
  1. LEVETIRACETAM [Suspect]
     Indication: CONVULSION
  2. PHENOBARBITAL [Concomitant]

REACTIONS (3)
  - Convulsion [None]
  - Pyrexia [None]
  - Stevens-Johnson syndrome [None]
